FAERS Safety Report 7887513-5 (Version None)
Quarter: 2011Q4

REPORT INFORMATION
  Report Type: 
  Country: None (occurrence: None)
  Receive Date: 20111103
  Receipt Date: 20111031
  Transmission Date: 20120403
  Serious: Yes (Death)
  Sender: FDA-Public Use
  Company Number: US-BIOGENIDEC-2011BI038338

PATIENT
  Age: 51 Year
  Sex: Female

DRUGS (16)
  1. EXCEDRIN (MIGRAINE) [Concomitant]
  2. TYSABRI [Suspect]
     Indication: MULTIPLE SCLEROSIS
     Route: 042
     Dates: start: 20080730, end: 20091028
  3. CRANBERRY WITH C [Concomitant]
  4. CALCIUM [Concomitant]
  5. FLUOXETINE HCL [Concomitant]
  6. FLAXSEED OIL [Concomitant]
  7. ACTONEL [Concomitant]
  8. BACLOFEN [Concomitant]
  9. FLOMAX [Concomitant]
  10. CRANBERRY WITH E [Concomitant]
  11. VITAMIN D [Concomitant]
  12. OXYBUTYNIN [Concomitant]
  13. SYNTHROID [Concomitant]
  14. IBUPROFEN (ADVIL) [Concomitant]
  15. OMEGA VITAMIN [Concomitant]
  16. MAGNESIUM [Concomitant]

REACTIONS (3)
  - MYOCARDIAL INFARCTION [None]
  - AUTONOMIC NERVOUS SYSTEM IMBALANCE [None]
  - DRUG INEFFECTIVE [None]
